FAERS Safety Report 5731740-X (Version None)
Quarter: 2008Q2

REPORT INFORMATION
  Report Type: 
  Country: None (occurrence: None)
  Receive Date: 20080508
  Receipt Date: 20080430
  Transmission Date: 20081010
  Serious: Yes (Hospitalization, Other)
  Sender: FDA-Public Use
  Company Number: US-AVENTIS-200812498US

PATIENT
  Sex: Male

DRUGS (6)
  1. LOVENOX [Suspect]
     Route: 051
     Dates: start: 20080403, end: 20080411
  2. PERCOCET [Concomitant]
     Dosage: DOSE: UNK
  3. VIT B 12 [Concomitant]
     Route: 051
  4. OSTEO BI-FLEX [Concomitant]
     Dosage: DOSE: UNK
  5. MULTI-VITAMINS [Concomitant]
     Dosage: DOSE: UNK
  6. XANAX [Concomitant]
     Dosage: DOSE: UNK

REACTIONS (14)
  - BODY TEMPERATURE INCREASED [None]
  - DYSPNOEA EXERTIONAL [None]
  - FATIGUE [None]
  - HYPERHIDROSIS [None]
  - INJECTION SITE ERYTHEMA [None]
  - INJECTION SITE HYPERSENSITIVITY [None]
  - INJECTION SITE INFECTION [None]
  - INJECTION SITE IRRITATION [None]
  - INJECTION SITE NECROSIS [None]
  - INJECTION SITE PAIN [None]
  - INJECTION SITE REACTION [None]
  - PULMONARY EMBOLISM [None]
  - PULMONARY INFARCTION [None]
  - TACHYCARDIA [None]
